FAERS Safety Report 7835426-7 (Version None)
Quarter: 2011Q4

REPORT INFORMATION
  Report Type: 
  Country: None (occurrence: None)
  Receive Date: 20111024
  Receipt Date: 20111019
  Transmission Date: 20120403
  Serious: Yes (Life-Threatening, Hospitalization, Other)
  Sender: FDA-Public Use
  Company Number: BR-ASTRAZENECA-2011SE63279

PATIENT
  Age: 34 Year
  Sex: Female
  Weight: 65 kg

DRUGS (3)
  1. SEROQUEL [Suspect]
     Route: 048
  2. CLONAZEPAM [Suspect]
     Route: 048
  3. OXCARBAZEPINE [Suspect]
     Route: 048

REACTIONS (4)
  - SOMNOLENCE [None]
  - LOSS OF CONSCIOUSNESS [None]
  - VOMITING [None]
  - SUICIDE ATTEMPT [None]
